FAERS Safety Report 4962068-3 (Version None)
Quarter: 2006Q2

REPORT INFORMATION
  Report Type: 
  Country: None (occurrence: None)
  Receive Date: 20060404
  Receipt Date: 20050328
  Transmission Date: 20061013
  Serious: Yes (Hospitalization, Other)
  Sender: FDA-Public Use
  Company Number: US-MERCK-0503USA04925

PATIENT
  Age: 64 Year
  Sex: Male
  Weight: 66 kg

DRUGS (2)
  1. VIOXX [Suspect]
     Indication: ARTHRITIS
     Route: 048
  2. VIOXX [Suspect]
     Route: 048

REACTIONS (7)
  - ANXIETY [None]
  - BACK DISORDER [None]
  - CEREBROVASCULAR ACCIDENT [None]
  - CORONARY ARTERY OCCLUSION [None]
  - DEPRESSION [None]
  - MYOCARDIAL INFARCTION [None]
  - TRIPLE VESSEL BYPASS GRAFT [None]
